FAERS Safety Report 9855177 (Version 2)
Quarter: 2014Q1

REPORT INFORMATION
  Report Type: Spontaneous
  Country: US (occurrence: US)
  Receive Date: 20140130
  Receipt Date: 20140130
  Transmission Date: 20141002
  Serious: Yes (Hospitalization, Other)
  Sender: FDA-Public Use
  Company Number: US-PFIZER INC-2014025889

PATIENT
  Age: 60 Year
  Sex: Male

DRUGS (1)
  1. PHENYTOIN [Suspect]
     Indication: CONVULSION
     Dosage: 300 MG, DAILY

REACTIONS (8)
  - Agranulocytosis [Recovered/Resolved]
  - Idiosyncratic drug reaction [Unknown]
  - Febrile neutropenia [Recovered/Resolved]
  - Liver function test abnormal [Recovered/Resolved]
  - Hepatomegaly [Unknown]
  - Dizziness [Unknown]
  - Nausea [Unknown]
  - Vomiting [Unknown]
